FAERS Safety Report 22156372 (Version 1)
Quarter: 2023Q1

REPORT INFORMATION
  Report Type: Spontaneous
  Country: US (occurrence: US)
  Receive Date: 20230330
  Receipt Date: 20230330
  Transmission Date: 20230417
  Serious: No
  Sender: FDA-Public Use
  Company Number: US-SA-SAC20230328001059

PATIENT
  Sex: Female

DRUGS (1)
  1. DUPIXENT [Suspect]
     Active Substance: DUPILUMAB
     Indication: Nasal polyps
     Dosage: 300MG; QOW
     Route: 058
     Dates: start: 20021201, end: 202303

REACTIONS (2)
  - Abdominal pain upper [Unknown]
  - Vision blurred [Unknown]

NARRATIVE: CASE EVENT DATE: 20230101
